FAERS Safety Report 16786511 (Version 1)
Quarter: 2019Q4

REPORT INFORMATION
  Report Type: Spontaneous
  Country: US (occurrence: US)
  Receive Date: 20190908
  Receipt Date: 20190908
  Transmission Date: 20200122
  Serious: No
  Sender: FDA-Public Use
  Company Number: None

PATIENT
  Age: 58 Year
  Sex: Male

DRUGS (2)
  1. IOSARTAN 25MG [Concomitant]
     Dates: start: 20190908, end: 20190908
  2. LOSARTAN 25MG [Suspect]
     Active Substance: LOSARTAN

REACTIONS (2)
  - Cardiac flutter [None]
  - Product substitution issue [None]

NARRATIVE: CASE EVENT DATE: 20190908
